FAERS Safety Report 9276418 (Version 1)
Quarter: 2013Q2

REPORT INFORMATION
  Report Type: Spontaneous
  Country: IN (occurrence: IN)
  Receive Date: 20130507
  Receipt Date: 20130507
  Transmission Date: 20140414
  Serious: Yes (Other)
  Sender: FDA-Public Use
  Company Number: IN-BAYER-2013-054216

PATIENT
  Age: 27 Year
  Sex: Female

DRUGS (3)
  1. CLOTRIMAZOLE [Suspect]
     Indication: ORAL CANDIDIASIS
     Route: 061
  2. CLOTRIMAZOLE [Suspect]
     Indication: CHEILITIS
  3. MULTIVITAMIN [Concomitant]

REACTIONS (2)
  - Tongue necrosis [Recovering/Resolving]
  - Tongue ulceration [Recovering/Resolving]
